FAERS Safety Report 6832753-7 (Version None)
Quarter: 2010Q3

REPORT INFORMATION
  Report Type: 
  Country: None (occurrence: None)
  Receive Date: 20100712
  Receipt Date: 20070320
  Transmission Date: 20110219
  Serious: No
  Sender: FDA-Public Use
  Company Number: US-PFIZER INC-2007023281

PATIENT
  Sex: Female
  Weight: 68.04 kg

DRUGS (7)
  1. CHANTIX [Suspect]
     Indication: SMOKING CESSATION THERAPY
     Dates: start: 20070316
  2. CYMBALTA [Concomitant]
  3. NEXIUM [Concomitant]
  4. ZYRTEC [Concomitant]
  5. LISINOPRIL [Concomitant]
  6. HYDROCHLOROTHIAZIDE [Concomitant]
  7. SUDAFED 12 HOUR [Concomitant]
     Indication: HYPERSENSITIVITY

REACTIONS (4)
  - DECREASED APPETITE [None]
  - ERUCTATION [None]
  - NAUSEA [None]
  - VOMITING [None]
